FAERS Safety Report 4677902-4 (Version None)
Quarter: 2005Q2

REPORT INFORMATION
  Report Type: 
  Country: None (occurrence: None)
  Receive Date: 20050531
  Receipt Date: 20050523
  Transmission Date: 20051028
  Serious: Yes (Life-Threatening)
  Sender: FDA-Public Use
  Company Number: ES-GLAXOSMITHKLINE-B0382522A

PATIENT
  Age: 67 Year
  Sex: Male

DRUGS (2)
  1. AUGMENTIN '125' [Suspect]
     Indication: PERIODONTITIS
     Dosage: 2.6G PER DAY
     Route: 048
     Dates: start: 20050420, end: 20050426
  2. IBUPROFEN [Suspect]
     Indication: PERIODONTITIS
     Dosage: .6G THREE TIMES PER DAY
     Route: 048
     Dates: start: 20040420, end: 20040426

REACTIONS (3)
  - HEPATITIS CHOLESTATIC [None]
  - JAUNDICE [None]
  - PRURITUS [None]
